FAERS Safety Report 24339906 (Version 1)
Quarter: 2024Q3

REPORT INFORMATION
  Report Type: Spontaneous
  Country: US (occurrence: US)
  Receive Date: 20240919
  Receipt Date: 20240919
  Transmission Date: 20241017
  Serious: Yes (Other)
  Sender: AMGEN
  Company Number: US-AMGEN-USASP2024185998

PATIENT
  Age: 66 Year
  Sex: Male

DRUGS (2)
  1. REPATHA [Suspect]
     Active Substance: EVOLOCUMAB
     Indication: Hyperlipidaemia
     Dosage: 140 MILLIGRAM, Q2WK
     Route: 058
  2. PRALUENT [Concomitant]
     Active Substance: ALIROCUMAB

REACTIONS (8)
  - Cardiac operation [Unknown]
  - Stent placement [Unknown]
  - Metabolic syndrome [Unknown]
  - Device difficult to use [Unknown]
  - Product supply issue [Unknown]
  - Device use error [Unknown]
  - Product administration error [Unknown]
  - Low density lipoprotein decreased [Unknown]

NARRATIVE: CASE EVENT DATE: 20240915
